FAERS Safety Report 5397916-9 (Version None)
Quarter: 2007Q3

REPORT INFORMATION
  Report Type: 
  Country: None (occurrence: None)
  Receive Date: 20070726
  Receipt Date: 20070724
  Transmission Date: 20080115
  Serious: Yes (Hospitalization)
  Sender: FDA-Public Use
  Company Number: IT-ASTRAZENECA-2007SE04132

PATIENT
  Age: 28362 Day
  Sex: Male

DRUGS (5)
  1. CASODEX [Suspect]
     Route: 048
     Dates: start: 20060414, end: 20070114
  2. MADOPAR [Suspect]
     Indication: PARKINSON'S DISEASE
     Route: 048
     Dates: start: 20060514, end: 20070114
  3. REQUIP [Suspect]
     Indication: PARKINSON'S DISEASE
     Route: 048
     Dates: start: 20060514, end: 20070114
  4. ENAPREN [Concomitant]
  5. TALOFEN [Concomitant]

REACTIONS (1)
  - CIRCULATORY COLLAPSE [None]
